FAERS Safety Report 12099364 (Version 1)
Quarter: 2016Q1

REPORT INFORMATION
  Report Type: Spontaneous
  Country: US (occurrence: None)
  Receive Date: 20160219
  Receipt Date: 20160219
  Transmission Date: 20160526
  Serious: Yes (Other)
  Sender: FDA-Public Use
  Company Number: None

PATIENT
  Age: 71 Year
  Sex: Female
  Weight: 60.33 kg

DRUGS (3)
  1. QVAR [Concomitant]
     Active Substance: BECLOMETHASONE DIPROPIONATE
  2. SULFAMETHOXAZOLE - TMP DS [Suspect]
     Active Substance: SULFAMETHOXAZOLE\TRIMETHOPRIM
     Indication: URINARY TRACT INFECTION
     Route: 048
     Dates: start: 20160202, end: 20160204
  3. ALBUTEROL. [Concomitant]
     Active Substance: ALBUTEROL

REACTIONS (10)
  - Back pain [None]
  - Gait disturbance [None]
  - Nervousness [None]
  - Decreased appetite [None]
  - Myalgia [None]
  - Pain in extremity [None]
  - Muscular weakness [None]
  - Arthralgia [None]
  - Sleep disorder due to general medical condition, insomnia type [None]
  - Activities of daily living impaired [None]

NARRATIVE: CASE EVENT DATE: 20160203
